FAERS Safety Report 8699053 (Version 3)
Quarter: 2016Q1

REPORT INFORMATION
  Report Type: Spontaneous
  Country: ZA (occurrence: ZA)
  Receive Date: 20120802
  Receipt Date: 20160105
  Transmission Date: 20160526
  Serious: Yes (Hospitalization, Other)
  Sender: FDA-Public Use
  Company Number: ZA-BRACCO-000018

PATIENT
  Age: 52 Year
  Sex: Male

DRUGS (6)
  1. IOPAMIRON [Suspect]
     Active Substance: IOPAMIDOL
     Indication: SPINAL MYELOGRAM
     Dosage: 18-20 ML IN THE SUBARCHNOID REGION
     Route: 037
     Dates: start: 20110112, end: 20110112
  2. VOLTAREN [Concomitant]
     Active Substance: DICLOFENAC SODIUM
     Indication: SCIATICA
  3. ALL OTHER THERAPEUTIC PRODUCTS [Concomitant]
     Active Substance: UNSPECIFIED INGREDIENT
     Indication: BACK PAIN
  4. ALL OTHER THERAPEUTIC PRODUCTS [Concomitant]
     Active Substance: UNSPECIFIED INGREDIENT
     Indication: SCIATICA
  5. IOPAMIRON [Suspect]
     Active Substance: IOPAMIDOL
     Indication: BACK INJURY
     Dosage: 18-20 ML IN THE SUBARCHNOID REGION
     Route: 037
     Dates: start: 20110112, end: 20110112
  6. VOLTAREN [Concomitant]
     Active Substance: DICLOFENAC SODIUM
     Indication: BACK PAIN

REACTIONS (7)
  - Nausea [Recovered/Resolved]
  - Loss of consciousness [Recovered/Resolved]
  - Overdose [Unknown]
  - Generalised tonic-clonic seizure [Recovered/Resolved]
  - Amnesia [Unknown]
  - Headache [Recovered/Resolved]
  - Presyncope [Recovered/Resolved]

NARRATIVE: CASE EVENT DATE: 2011
